FAERS Safety Report 15610022 (Version 3)
Quarter: 2019Q2

REPORT INFORMATION
  Report Type: Spontaneous
  Country: US (occurrence: US)
  Receive Date: 20181113
  Receipt Date: 20190617
  Transmission Date: 20190711
  Serious: Yes (Disabling, Other)
  Sender: FDA-Public Use
  Company Number: US-PFIZER INC-2018456520

PATIENT
  Age: 54 Year
  Sex: Female
  Weight: 95.25 kg

DRUGS (16)
  1. LYRICA [Suspect]
     Active Substance: PREGABALIN
     Indication: FIBROMYALGIA
     Dosage: 50 MG, UNK
  2. LYRICA [Suspect]
     Active Substance: PREGABALIN
     Indication: INTERVERTEBRAL DISC PROTRUSION
     Dosage: 75 MG, TWICE A DAY
     Route: 048
     Dates: start: 2018
  3. MELOXICAM. [Concomitant]
     Active Substance: MELOXICAM
     Indication: PAIN
     Dosage: 7.5 MG, 2X/DAY
     Route: 048
     Dates: start: 20180727
  4. PANTOPRAZOLE [Concomitant]
     Active Substance: PANTOPRAZOLE
     Indication: CONSTIPATION
     Dosage: 40 MG, EVERY MORNING, 30 MINUTES BEFORE EATING ANYTHING
     Route: 048
  5. FAMOTIDINE. [Concomitant]
     Active Substance: FAMOTIDINE
     Indication: REFLUX GASTRITIS
     Dosage: 40 MG, 2X/DAY
     Route: 048
  6. LYRICA [Suspect]
     Active Substance: PREGABALIN
     Dosage: ONE CAPSULE, EVERY OTHER DAY
     Route: 048
  7. LYRICA [Suspect]
     Active Substance: PREGABALIN
     Dosage: 75 MG, 4X/DAY
     Route: 048
     Dates: start: 2018
  8. CARVEDILOL. [Concomitant]
     Active Substance: CARVEDILOL
     Indication: HYPERTENSION
     Dosage: 25 MG, 2X/DAY
     Route: 048
  9. BABY ASPIRIN [Concomitant]
     Active Substance: ASPIRIN
     Indication: ANTIPHOSPHOLIPID ANTIBODIES
     Dosage: 1 DF, 1X/DAY (ONE TABLET AT BED TIME)
  10. IMODIUM [Concomitant]
     Active Substance: LOPERAMIDE HYDROCHLORIDE
     Indication: DIARRHOEA
     Dosage: UNK, AS NEEDED
  11. CYMBALTA [Suspect]
     Active Substance: DULOXETINE HYDROCHLORIDE
     Indication: MAJOR DEPRESSION
     Dosage: 60 MG, TWICE A DAY
     Route: 048
  12. LATUDA [Concomitant]
     Active Substance: LURASIDONE HYDROCHLORIDE
     Indication: POST-TRAUMATIC STRESS DISORDER
     Dosage: 20 MG, ONCE A DAY AT BED TIME
     Route: 048
     Dates: start: 201810
  13. LATUDA [Concomitant]
     Active Substance: LURASIDONE HYDROCHLORIDE
     Indication: PAIN
     Dosage: 30 MG, 1X/DAY(BEDTIME)
  14. MIRALAX [Concomitant]
     Active Substance: POLYETHYLENE GLYCOL 3350
     Indication: CONSTIPATION
     Dosage: UNK, AS NEEDED
  15. AMLODIPINE [Concomitant]
     Active Substance: AMLODIPINE BESYLATE
     Indication: HYPERTENSION
     Dosage: 2.5 MG, 1X/DAY
     Route: 048
  16. ADDERALL [Concomitant]
     Active Substance: AMPHETAMINE ASPARTATE\AMPHETAMINE SULFATE\DEXTROAMPHETAMINE SACCHARATE\DEXTROAMPHETAMINE SULFATE
     Indication: FATIGUE
     Dosage: 30 MG, ONCE A DAY IN THE MORNING
     Route: 048

REACTIONS (15)
  - Tremor [Not Recovered/Not Resolved]
  - Hyperhidrosis [Not Recovered/Not Resolved]
  - Back pain [Not Recovered/Not Resolved]
  - Frontotemporal dementia [Unknown]
  - Muscle spasms [Not Recovered/Not Resolved]
  - Feeling cold [Not Recovered/Not Resolved]
  - Emotional disorder [Unknown]
  - Intentional product misuse [Unknown]
  - Pain [Not Recovered/Not Resolved]
  - Off label use [Unknown]
  - Withdrawal syndrome [Unknown]
  - Feeling hot [Not Recovered/Not Resolved]
  - Decreased appetite [Unknown]
  - Reading disorder [Unknown]
  - Disturbance in attention [Recovering/Resolving]

NARRATIVE: CASE EVENT DATE: 2018
